FAERS Safety Report 7564265-X (Version None)
Quarter: 2011Q2

REPORT INFORMATION
  Report Type: 
  Country: None (occurrence: None)
  Receive Date: 20110622
  Receipt Date: 20110301
  Transmission Date: 20111010
  Serious: No
  Sender: FDA-Public Use
  Company Number: US-ALLERGAN-1102921US

PATIENT
  Age: 77 Year
  Sex: Male

DRUGS (2)
  1. TIMOLOL MALEATE [Concomitant]
     Indication: INTRAOCULAR PRESSURE TEST
     Dosage: UNK
  2. LUMIGAN [Suspect]
     Indication: INTRAOCULAR PRESSURE TEST
     Dosage: 1 GTT, QHS
     Route: 047
     Dates: start: 20110211, end: 20110225

REACTIONS (2)
  - LACRIMATION INCREASED [None]
  - EYE PAIN [None]
